FAERS Safety Report 5806043-5 (Version None)
Quarter: 2008Q3

REPORT INFORMATION
  Report Type: 
  Country: None (occurrence: None)
  Receive Date: 20080710
  Receipt Date: 20070412
  Transmission Date: 20090109
  Serious: Yes (Other)
  Sender: FDA-Public Use
  Company Number: DE-ASTRAZENECA-2008PK01454

PATIENT
  Age: 84 Year
  Sex: Male
  Weight: 84 kg

DRUGS (2)
  1. SYMBICORT [Suspect]
     Indication: CHRONIC OBSTRUCTIVE PULMONARY DISEASE
     Dosage: 320/9 TWO INHALATIONS PER DAY
     Route: 055
     Dates: start: 20051104, end: 20051208
  2. ALBUTEROL [Concomitant]
     Indication: CHRONIC OBSTRUCTIVE PULMONARY DISEASE
     Dosage: 2 INHALTIONS DAILY

REACTIONS (2)
  - COUGH [None]
  - LARYNGITIS [None]
